FAERS Safety Report 16045590 (Version 2)
Quarter: 2019Q1

REPORT INFORMATION
  Report Type: Report from Study
  Country: US (occurrence: US)
  Receive Date: 20190307
  Receipt Date: 20190315
  Transmission Date: 20190418
  Serious: Yes (Hospitalization, Other)
  Sender: FDA-Public Use
  Company Number: US-BRISTOL-MYERS SQUIBB COMPANY-BMS-2019-022563

PATIENT
  Age: 56 Year
  Sex: Female
  Weight: 123.4 kg

DRUGS (2)
  1. NIVOLUMAB [Suspect]
     Active Substance: NIVOLUMAB
     Indication: NEOPLASM
     Dosage: 240 MG, UNK
     Route: 042
     Dates: start: 20180105, end: 20190201
  2. IPILIMUMAB [Suspect]
     Active Substance: IPILIMUMAB
     Indication: NEOPLASM
     Dosage: 110 MG, UNK
     Route: 042
     Dates: start: 20180105, end: 20190117

REACTIONS (3)
  - Anaphylactoid reaction [Unknown]
  - Hepatitis viral [Recovering/Resolving]
  - Pyrexia [Recovered/Resolved]

NARRATIVE: CASE EVENT DATE: 20190202
